FAERS Safety Report 12949201 (Version 2)
Quarter: 2018Q3

REPORT INFORMATION
  Report Type: Spontaneous
  Country: US (occurrence: FR)
  Receive Date: 20161116
  Receipt Date: 20180823
  Transmission Date: 20181010
  Serious: Yes (Other)
  Sender: FDA-Public Use
  Company Number: FR-009507513-1611FRA005447

PATIENT
  Age: 15 Year
  Sex: Male

DRUGS (18)
  1. NOXAFIL [Suspect]
     Active Substance: POSACONAZOLE
     Dosage: 300 MG, BID
     Route: 048
     Dates: start: 20161013, end: 20161021
  2. INEXIUM (ESOMEPRAZOLE SODIUM) [Concomitant]
     Active Substance: ESOMEPRAZOLE SODIUM
     Dosage: UNK
     Route: 048
  3. JAKAVI [Concomitant]
     Active Substance: RUXOLITINIB
  4. PLITICAN [Concomitant]
     Active Substance: ALIZAPRIDE HYDROCHLORIDE
  5. COLIMYCINE (COLISTIMETHATE SODIUM) [Concomitant]
     Active Substance: COLISTIMETHATE SODIUM
  6. TARGOCID [Concomitant]
     Active Substance: TEICOPLANIN
  7. CANCIDAS [Concomitant]
     Active Substance: CASPOFUNGIN ACETATE
  8. CELLCEPT [Concomitant]
     Active Substance: MYCOPHENOLATE MOFETIL\MYCOPHENOLATE MOFETIL HYDROCHLORIDE
  9. TIENAM [Concomitant]
     Active Substance: CILASTATIN SODIUM\IMIPENEM
  10. ZELITREX [Concomitant]
     Active Substance: VALACYCLOVIR HYDROCHLORIDE
     Dosage: 500 MG, BID
  11. LASILIX [Concomitant]
     Active Substance: FUROSEMIDE
  12. TAHOR [Concomitant]
     Active Substance: ATORVASTATIN CALCIUM
  13. ZITHROMAX [Concomitant]
     Active Substance: AZITHROMYCIN DIHYDRATE
     Dosage: 250 MG, TIW
     Route: 048
  14. SPASFON [Concomitant]
  15. URSODIOL. [Concomitant]
     Active Substance: URSODIOL
  16. KREDEX [Concomitant]
     Active Substance: CARVEDILOL
  17. ZARZIO [Concomitant]
     Active Substance: FILGRASTIM
  18. AMIKLIN [Concomitant]
     Active Substance: AMIKACIN SULFATE

REACTIONS (3)
  - Panic attack [Not Recovered/Not Resolved]
  - Aggression [Not Recovered/Not Resolved]
  - Anxiety [Not Recovered/Not Resolved]

NARRATIVE: CASE EVENT DATE: 20161021
